FAERS Safety Report 12081590 (Version 1)
Quarter: 2016Q1

REPORT INFORMATION
  Report Type: Spontaneous
  Country: US (occurrence: US)
  Receive Date: 20160216
  Receipt Date: 20160216
  Transmission Date: 20160526
  Serious: No
  Sender: FDA-Public Use
  Company Number: US-LUNDBECK-DKLU2008739

PATIENT
  Age: 76 Year
  Sex: Male

DRUGS (3)
  1. NORTHERA [Suspect]
     Active Substance: DROXIDOPA
     Indication: PRODUCT USED FOR UNKNOWN INDICATION
     Route: 065
     Dates: start: 20160107
  2. NORTHERA [Suspect]
     Active Substance: DROXIDOPA
     Dates: start: 20160108
  3. NORTHERA [Suspect]
     Active Substance: DROXIDOPA
     Dates: start: 20160108

REACTIONS (2)
  - Blood pressure increased [Unknown]
  - Drug titration error [Unknown]

NARRATIVE: CASE EVENT DATE: 20160107
